FAERS Safety Report 8255507-6 (Version None)
Quarter: 2012Q2

REPORT INFORMATION
  Report Type: 
  Country: None (occurrence: None)
  Receive Date: 20120403
  Receipt Date: 20120328
  Transmission Date: 20120825
  Serious: Yes (Other)
  Sender: FDA-Public Use
  Company Number: US-PFIZER INC-2012079896

PATIENT
  Sex: Female
  Weight: 94.331 kg

DRUGS (16)
  1. IMITREX [Concomitant]
     Indication: MIGRAINE
     Dosage: UNK
  2. MORPHINE SULFATE [Concomitant]
     Indication: PAIN
     Dosage: UNK
  3. AMLODIPINE [Concomitant]
     Indication: HYPERTENSION
     Dosage: UNK
  4. GABAPENTIN [Concomitant]
     Indication: FIBROMYALGIA
  5. ZOFRAN [Concomitant]
     Indication: MIGRAINE
  6. KLONOPIN [Concomitant]
     Indication: ANXIETY
     Dosage: UNK, AS NEEDED
  7. GABAPENTIN [Concomitant]
     Indication: PAIN
     Dosage: UNK
  8. GABAPENTIN [Concomitant]
     Indication: SPINAL HAEMANGIOMA
  9. TORADOL [Concomitant]
     Indication: MIGRAINE
     Dosage: UNK
  10. ZOFRAN [Concomitant]
     Indication: NAUSEA
     Dosage: UNK
  11. MORPHINE SULFATE [Concomitant]
     Indication: FIBROMYALGIA
  12. PRISTIQ [Suspect]
     Indication: DEPRESSION
     Dosage: 100 MG, DAILY
     Dates: end: 20111201
  13. MORPHINE SULFATE [Concomitant]
     Indication: SPINAL HAEMANGIOMA
  14. METHADONE [Concomitant]
     Indication: FIBROMYALGIA
  15. METHADONE [Concomitant]
     Indication: SPINAL HAEMANGIOMA
  16. METHADONE [Concomitant]
     Indication: PAIN
     Dosage: UNK

REACTIONS (1)
  - MAJOR DEPRESSION [None]
